FAERS Safety Report 20165528 (Version 1)
Quarter: 2021Q4

REPORT INFORMATION
  Report Type: Spontaneous
  Country: US (occurrence: US)
  Receive Date: 20211209
  Receipt Date: 20211209
  Transmission Date: 20220303
  Serious: No
  Sender: FDA-Public Use
  Company Number: US-GSKCCFUS-Case-01232469_AE-72269

PATIENT
  Sex: Female

DRUGS (1)
  1. VENTOLIN HFA [Suspect]
     Active Substance: ALBUTEROL SULFATE
     Indication: Product used for unknown indication
     Dosage: UNK, QID
     Route: 055

REACTIONS (7)
  - Gait inability [Recovered/Resolved]
  - Dysstasia [Recovered/Resolved]
  - Visual impairment [Unknown]
  - Eye operation [Unknown]
  - Illness [Recovered/Resolved]
  - Hypokinesia [Unknown]
  - Wrong technique in product usage process [Unknown]

NARRATIVE: CASE EVENT DATE: 20210101
